FAERS Safety Report 15403775 (Version 1)
Quarter: 2018Q3

REPORT INFORMATION
  Report Type: Spontaneous
  Country: KR (occurrence: KR)
  Receive Date: 20180919
  Receipt Date: 20180919
  Transmission Date: 20181010
  Serious: Yes (Other)
  Sender: FDA-Public Use
  Company Number: KR-MYLANLABS-2018M1068012

PATIENT
  Age: 32 Year
  Sex: Female

DRUGS (4)
  1. DEXA?S [Concomitant]
     Indication: DERMATITIS ATOPIC
     Dosage: 5MG/ML; INTERMITTENT TREATMENT
     Route: 065
     Dates: start: 201501
  2. NORMAL SALINE [Concomitant]
     Active Substance: SODIUM CHLORIDE
     Indication: PRODUCT USED FOR UNKNOWN INDICATION
     Dosage: TRIAMCINOLONE SOLUTION, MADE OF ONLY TRIAMCINOLONE AND NORMAL SALINE
     Route: 065
     Dates: start: 201501
  3. METHYLON                           /00049601/ [Concomitant]
     Active Substance: METHYLPREDNISOLONE
     Indication: DERMATITIS ATOPIC
     Dosage: INTERMITTENT TREATMENT
     Route: 065
     Dates: start: 201501
  4. TRIAMCINOLONE [Suspect]
     Active Substance: TRIAMCINOLONE
     Indication: DERMATITIS ATOPIC
     Dosage: TOTALLY, 0.7 ML OF TRIAMCINOLONE SOLUTION (MADE OF ONLY TRIAMCINOLONE AND NORMAL SALINE; THE CONC...
     Route: 026
     Dates: start: 201501

REACTIONS (1)
  - Type I hypersensitivity [Recovered/Resolved]

NARRATIVE: CASE EVENT DATE: 201512
